FAERS Safety Report 21987307 (Version 1)
Quarter: 2023Q1

REPORT INFORMATION
  Report Type: Spontaneous
  Country: FR (occurrence: FR)
  Receive Date: 20230214
  Receipt Date: 20230214
  Transmission Date: 20230418
  Serious: Yes (Hospitalization)
  Sender: FDA-Public Use
  Company Number: None

PATIENT
  Age: 45 Year
  Sex: Female
  Weight: 49 kg

DRUGS (5)
  1. LOMUSTINE [Suspect]
     Active Substance: LOMUSTINE
     Indication: Oligodendroglioma
     Route: 065
     Dates: start: 20190520, end: 20200106
  2. FOTEMUSTINE [Suspect]
     Active Substance: FOTEMUSTINE
     Indication: Oligodendroglioma
     Route: 065
     Dates: start: 201806, end: 201901
  3. AVASTIN [Suspect]
     Active Substance: BEVACIZUMAB
     Indication: Oligodendroglioma
     Route: 065
     Dates: start: 201806, end: 20221003
  4. TEMODAL [Suspect]
     Active Substance: TEMOZOLOMIDE
     Indication: Oligodendroglioma
     Route: 065
     Dates: start: 20140617, end: 201801
  5. IVOSIDENIB [Concomitant]
     Active Substance: IVOSIDENIB
     Indication: Oligodendroglioma
     Dates: start: 20220325, end: 20220702

REACTIONS (1)
  - Acute myeloid leukaemia [Not Recovered/Not Resolved]

NARRATIVE: CASE EVENT DATE: 20221110
